FAERS Safety Report 17103556 (Version 1)
Quarter: 2019Q4

REPORT INFORMATION
  Report Type: Spontaneous
  Country: ES (occurrence: ES)
  Receive Date: 20191203
  Receipt Date: 20191203
  Transmission Date: 20200122
  Serious: Yes (Hospitalization)
  Sender: FDA-Public Use
  Company Number: ES-ROCHE-2482049

PATIENT
  Sex: Male
  Weight: 72.4 kg

DRUGS (16)
  1. AMERIDE [AMILORIDE HYDROCHLORIDE;HYDROCHLOROTHIAZIDE] [Concomitant]
     Indication: HYPERTENSION
     Route: 048
     Dates: start: 20160118, end: 20191023
  2. ZALDIAR [Concomitant]
     Active Substance: ACETAMINOPHEN\TRAMADOL HYDROCHLORIDE
     Dosage: 1-1-1
     Route: 065
     Dates: start: 20191011
  3. PARACETAMOL [Concomitant]
     Active Substance: ACETAMINOPHEN
     Dosage: 1-1-1-1
     Route: 065
     Dates: start: 20190613
  4. ATENOLOL. [Concomitant]
     Active Substance: ATENOLOL
     Dosage: 1-0-0
     Route: 048
     Dates: start: 20080802
  5. TOVANOR BREEZHALER [Concomitant]
     Active Substance: GLYCOPYRROLATE
     Dosage: 1-0-0
     Route: 065
     Dates: start: 20181114
  6. LOSARTAN. [Suspect]
     Active Substance: LOSARTAN
     Indication: HYPERTENSION
     Route: 065
     Dates: start: 20150119, end: 20191031
  7. NASONEX [Concomitant]
     Active Substance: MOMETASONE FUROATE
     Dosage: 4-0-0
     Route: 045
     Dates: start: 20170719
  8. ATEZOLIZUMAB. [Suspect]
     Active Substance: ATEZOLIZUMAB
     Indication: LUNG NEOPLASM MALIGNANT
     Route: 042
     Dates: start: 20191017
  9. LORAZEPAM. [Concomitant]
     Active Substance: LORAZEPAM
     Dosage: 1-0-0
     Route: 065
     Dates: start: 20190620
  10. TERBASMIN [TERBUTALINE SULFATE] [Concomitant]
     Dosage: 1-0-0
     Route: 055
     Dates: start: 20180320
  11. NOLOTIL [METAMIZOLE MAGNESIUM] [Concomitant]
     Active Substance: METAMIZOLE MAGNESIUM
     Dosage: 1-1-1-1
     Route: 065
     Dates: start: 20191011
  12. ACFOL [Concomitant]
     Active Substance: FOLIC ACID
     Dosage: 1-0-0
     Route: 065
     Dates: start: 20190219
  13. MOVICOL [Concomitant]
     Active Substance: POLYETHYLENE GLYCOL 3350\POTASSIUM CHLORIDE\SODIUM BICARBONATE\SODIUM CHLORIDE
     Dosage: 1-1-1
     Route: 065
     Dates: start: 20191031
  14. OMEPRAZOL [OMEPRAZOLE] [Concomitant]
     Active Substance: OMEPRAZOLE
     Dosage: 1-0-0
     Route: 048
     Dates: start: 20121018
  15. GEMFIBROZILO [Concomitant]
     Active Substance: GEMFIBROZIL
     Dosage: 0-0-1
     Route: 048
     Dates: start: 20070402
  16. IBUPROFEN. [Concomitant]
     Active Substance: IBUPROFEN
     Dosage: 1-0-0
     Route: 065
     Dates: start: 20190613

REACTIONS (2)
  - Hyponatraemia [Recovering/Resolving]
  - Condition aggravated [Recovering/Resolving]

NARRATIVE: CASE EVENT DATE: 20191031
